FAERS Safety Report 19685156 (Version 3)
Quarter: 2021Q3

REPORT INFORMATION
  Report Type: Report from Study
  Country: BR (occurrence: BR)
  Receive Date: 20210811
  Receipt Date: 20210917
  Transmission Date: 20211014
  Serious: Yes (Other)
  Sender: FDA-Public Use
  Company Number: NVSC2021BR048571

PATIENT
  Age: 77 Year
  Sex: Female

DRUGS (5)
  1. KISQALI [Suspect]
     Active Substance: RIBOCICLIB
     Indication: PRODUCT USED FOR UNKNOWN INDICATION
     Dosage: UNK
     Route: 065
     Dates: start: 202009
  2. FEMARA [Suspect]
     Active Substance: LETROZOLE
     Indication: PRODUCT USED FOR UNKNOWN INDICATION
     Dosage: 1 DF
     Route: 065
     Dates: start: 20201001
  3. SIMVASTATIN. [Suspect]
     Active Substance: SIMVASTATIN
     Indication: BLOOD CHOLESTEROL
     Dosage: UNK
     Route: 065
     Dates: start: 202010
  4. KISQALI [Suspect]
     Active Substance: RIBOCICLIB
     Dosage: UNK
     Route: 065
     Dates: start: 20201001
  5. KISQALI [Suspect]
     Active Substance: RIBOCICLIB
     Dosage: 3 DF (DAILY, 7 DAY BREAK)
     Route: 065
     Dates: start: 20201001

REACTIONS (23)
  - Eating disorder [Not Recovered/Not Resolved]
  - Blood cholesterol abnormal [Unknown]
  - Dysphagia [Unknown]
  - Fatigue [Unknown]
  - Taste disorder [Not Recovered/Not Resolved]
  - Nausea [Recovering/Resolving]
  - Heart rate decreased [Recovered/Resolved]
  - Cognitive disorder [Unknown]
  - Arrhythmia [Unknown]
  - Discomfort [Recovering/Resolving]
  - Anaemia [Unknown]
  - General physical health deterioration [Unknown]
  - Blood pressure abnormal [Recovered/Resolved]
  - Confusional state [Unknown]
  - Blood urea abnormal [Recovered/Resolved]
  - Bradycardia [Unknown]
  - Dementia [Unknown]
  - Blood pressure increased [Recovered/Resolved]
  - Anxiety [Unknown]
  - Depression [Unknown]
  - Decreased appetite [Not Recovered/Not Resolved]
  - Blood pressure increased [Recovered/Resolved]
  - Blood creatinine abnormal [Recovered/Resolved]

NARRATIVE: CASE EVENT DATE: 202101
